FAERS Safety Report 7821433 (Version 2)
Quarter: 2017Q1

REPORT INFORMATION
  Report Type: Spontaneous
  Country: US (occurrence: US)
  Receive Date: 20110222
  Receipt Date: 20170126
  Transmission Date: 20170429
  Serious: Yes (Hospitalization, Other)
  Sender: FDA-Public Use
  Company Number: US-ROCHE-727614

PATIENT
  Age: 19 Year
  Sex: Male
  Weight: 84.4 kg

DRUGS (2)
  1. ACCUTANE [Suspect]
     Active Substance: ISOTRETINOIN
     Indication: ACNE
     Route: 065
     Dates: start: 199909, end: 200003
  2. MARIJUANA [Suspect]
     Active Substance: CANNABIS SATIVA SUBSP. INDICA TOP
     Indication: PRODUCT USED FOR UNKNOWN INDICATION
     Route: 065

REACTIONS (8)
  - Colitis ulcerative [Unknown]
  - Depression [Not Recovered/Not Resolved]
  - Aphthous ulcer [Unknown]
  - Inflammatory bowel disease [Unknown]
  - Drug abuse [Unknown]
  - Pouchitis [Unknown]
  - Suicidal ideation [Unknown]
  - Gastrointestinal disorder [Unknown]

NARRATIVE: CASE EVENT DATE: 200302
